FAERS Safety Report 7601212-6 (Version None)
Quarter: 2011Q3

REPORT INFORMATION
  Report Type: 
  Country: None (occurrence: None)
  Receive Date: 20110711
  Receipt Date: 20110701
  Transmission Date: 20111222
  Serious: Yes (Other)
  Sender: FDA-Public Use
  Company Number: CN-GLAXOSMITHKLINE-B0731755A

PATIENT

DRUGS (1)
  1. FLIXONASE [Suspect]
     Indication: RHINITIS
     Route: 063
     Dates: start: 20110616

REACTIONS (2)
  - ASTHMA [None]
  - EXPOSURE DURING BREAST FEEDING [None]
